FAERS Safety Report 6337847-0 (Version None)
Quarter: 2009Q3

REPORT INFORMATION
  Report Type: 
  Country: None (occurrence: None)
  Receive Date: 20090902
  Receipt Date: 20090825
  Transmission Date: 20100115
  Serious: Yes (Disabling)
  Sender: FDA-Public Use
  Company Number: B0541658A

PATIENT
  Sex: Male

DRUGS (5)
  1. SERETIDE [Suspect]
     Indication: ASTHMA
     Dosage: 4PUFF TWICE PER DAY
     Route: 055
     Dates: start: 20070501
  2. VENTOLIN [Suspect]
     Indication: ASTHMA
     Route: 055
     Dates: start: 20030101, end: 20070501
  3. SYMBICORT [Suspect]
     Indication: ASTHMA
     Route: 055
     Dates: start: 20030101, end: 20070501
  4. TEOFYLLIN [Suspect]
     Indication: ASTHMA
     Route: 065
     Dates: start: 19990101
  5. AIROMIR [Suspect]
     Indication: ASTHMA
     Dosage: .1MG AS REQUIRED
     Route: 065
     Dates: start: 20070501

REACTIONS (2)
  - BACK PAIN [None]
  - EPIDURAL LIPOMATOSIS [None]
